FAERS Safety Report 8918856 (Version 1)
Quarter: 2012Q4

REPORT INFORMATION
  Report Type: Spontaneous
  Country: US (occurrence: None)
  Receive Date: 20121115
  Receipt Date: 20121115
  Transmission Date: 20130627
  Serious: Yes (Hospitalization, Other)
  Sender: FDA-Public Use
  Company Number: None

PATIENT
  Age: 66 Year
  Sex: Male
  Weight: 101.5 kg

DRUGS (1)
  1. DARBEPOETIN ALFA [Suspect]
     Indication: RENAL ANEMIA
     Dosage: 40 MCG  IV
     Route: 042
     Dates: start: 20101016, end: 20121003

REACTIONS (1)
  - Cerebral infarction [None]
